FAERS Safety Report 8215825-4 (Version None)
Quarter: 2012Q1

REPORT INFORMATION
  Report Type: 
  Country: None (occurrence: None)
  Receive Date: 20120313
  Receipt Date: 20120229
  Transmission Date: 20120608
  Serious: Yes (Other)
  Sender: FDA-Public Use
  Company Number: 2012MA002754

PATIENT
  Age: 5 Year
  Sex: Male

DRUGS (1)
  1. IBUPROFEN [Suspect]
     Indication: PAIN
     Dosage: 5 ML, X1, PO
     Route: 048
     Dates: start: 20120228

REACTIONS (2)
  - HYPERSENSITIVITY [None]
  - SPEECH DISORDER [None]
